FAERS Safety Report 6597797-1 (Version None)
Quarter: 2010Q1

REPORT INFORMATION
  Report Type: 
  Country: None (occurrence: None)
  Receive Date: 20100216
  Receipt Date: 20100203
  Transmission Date: 20100710
  Serious: Yes (Hospitalization)
  Sender: FDA-Public Use
  Company Number: 2009-201106-NL

PATIENT
  Age: 25 Year
  Sex: Female

DRUGS (1)
  1. NUVARING [Suspect]
     Indication: CONTRACEPTION
     Dates: start: 20061101, end: 20070716

REACTIONS (9)
  - ARTHRALGIA [None]
  - BLOOD HOMOCYSTEINE INCREASED [None]
  - CARDIOMEGALY [None]
  - DEEP VEIN THROMBOSIS [None]
  - HIATUS HERNIA [None]
  - HYPERCOAGULATION [None]
  - MAJOR DEPRESSION [None]
  - OBESITY [None]
  - PULMONARY EMBOLISM [None]
